FAERS Safety Report 20139215 (Version 1)
Quarter: 2021Q4

REPORT INFORMATION
  Report Type: Spontaneous
  Country: US (occurrence: None)
  Receive Date: 20211201
  Receipt Date: 20211201
  Transmission Date: 20220303
  Serious: No
  Sender: FDA-Public Use
  Company Number: None

PATIENT
  Age: 71 Year
  Sex: Male
  Weight: 69.75 kg

DRUGS (4)
  1. AZITHROMYCIN [Suspect]
     Active Substance: AZITHROMYCIN
     Indication: Tooth infection
     Dosage: OTHER QUANTITY : 2 TABLET(S);?OTHER FREQUENCY : 2 FOR FIRST DOSE,;?
     Route: 048
     Dates: start: 20211130, end: 20211201
  2. tenoretic (100-25) [Concomitant]
  3. potassium (20 MEQ) [Concomitant]
  4. red yeast rice extract [Concomitant]

REACTIONS (4)
  - Syncope [None]
  - Hypoacusis [None]
  - Dyspnoea [None]
  - Chills [None]

NARRATIVE: CASE EVENT DATE: 20211130
